FAERS Safety Report 14252181 (Version 1)
Quarter: 2017Q4

REPORT INFORMATION
  Report Type: Spontaneous
  Country: US (occurrence: US)
  Receive Date: 20171205
  Receipt Date: 20171205
  Transmission Date: 20180321
  Serious: No
  Sender: FDA-Public Use
  Company Number: US-B.I. PHARMACEUTICALS,INC./RIDGEFIELD-2017-BI-064688

PATIENT
  Sex: Male
  Weight: 143 kg

DRUGS (10)
  1. CLONAZEPAM. [Concomitant]
     Active Substance: CLONAZEPAM
     Indication: PANIC ATTACK
     Dosage: BID;  FORM STRENGTH: 1 MG; FORMULATION: TABLET
     Route: 048
     Dates: start: 2007
  2. BUSPAR [Concomitant]
     Active Substance: BUSPIRONE HYDROCHLORIDE
     Indication: ANXIETY
     Dosage: BID;  FORM STRENGTH: 30 MG; FORMULATION: TABLET
     Route: 048
     Dates: start: 2007
  3. OMPRAZOLE [Concomitant]
     Active Substance: OMEPRAZOLE
     Indication: DYSPEPSIA
     Dosage: BID;  FORM STRENGTH: 20 MG; FORMULATION: CAPSULE
     Route: 048
     Dates: start: 2009
  4. PRADAXA [Suspect]
     Active Substance: DABIGATRAN ETEXILATE MESYLATE
     Indication: FACTOR V DEFICIENCY
     Dosage: BID;  FORM STRENGTH: 150 MG; FORMULATION: CAPSULE??ACTION(S) TAKEN WITH PRODUCT: DOSE NOT CHANGED
     Route: 048
     Dates: start: 2013
  5. VIIBRYD [Concomitant]
     Active Substance: VILAZODONE HYDROCHLORIDE
     Indication: DEPRESSION
     Dosage: 2 TABS HS;  FORM STRENGTH: 40 MG; FORMULATION: TABLET
     Route: 048
     Dates: start: 2013
  6. LISINOPRIL. [Concomitant]
     Active Substance: LISINOPRIL
     Indication: HYPERTENSION
     Dosage: BID;  FORM STRENGTH: 30 MG; FORMULATION: TABLET
     Route: 048
     Dates: start: 2004
  7. DILTIAZEM. [Concomitant]
     Active Substance: DILTIAZEM
     Indication: HYPERTENSION
     Dosage: ONCE DAILY;  FORM STRENGTH: 180 MG; FORMULATION: CAPSULE
     Route: 048
     Dates: start: 2017
  8. ANAFRANIL [Concomitant]
     Active Substance: CLOMIPRAMINE HYDROCHLORIDE
     Indication: OBSESSIVE-COMPULSIVE DISORDER
     Dosage: 5 CAPSULES HS;  FORM STRENGTH: 250 MG; FORMULATION: CAPSULE
     Route: 048
     Dates: start: 1991
  9. TRAZODONE [Concomitant]
     Active Substance: TRAZODONE HYDROCHLORIDE
     Indication: NEUROTRANSMITTER LEVEL ALTERED
     Dosage: 2 TABLETS HS;  FORM STRENGTH: 100 MG; FORMULATION: TABLET
     Route: 048
     Dates: start: 2007
  10. REMERON [Concomitant]
     Active Substance: MIRTAZAPINE
     Indication: ANXIETY
     Dosage: ONCE DAILY;  FORM STRENGTH: 30 MG; FORMULATION: CAPSULE
     Route: 048
     Dates: start: 2015

REACTIONS (4)
  - Paraesthesia [Recovered/Resolved]
  - Hypotension [Recovered/Resolved]
  - Erythema [Recovered/Resolved]
  - Dental paraesthesia [Recovered/Resolved]

NARRATIVE: CASE EVENT DATE: 2014
